FAERS Safety Report 8629891 (Version 3)
Quarter: 2013Q1

REPORT INFORMATION
  Report Type: Spontaneous
  Country: US (occurrence: US)
  Receive Date: 20120622
  Receipt Date: 20130109
  Transmission Date: 20140127
  Serious: Yes (Other)
  Sender: FDA-Public Use
  Company Number: US-BAYER-2012-061481

PATIENT
  Age: 56 Year
  Sex: Male

DRUGS (6)
  1. NEXAVAR [Suspect]
     Indication: RENAL CANCER
     Dosage: 200 MG AM, 400 MG PM
     Dates: start: 201109, end: 20120612
  2. NEXAVAR [Suspect]
     Indication: RENAL CANCER
     Dosage: 200 MG IN AM AND 400 MG PM
     Dates: start: 201111, end: 201206
  3. NEXAVAR [Suspect]
     Indication: RENAL CANCER
     Dosage: 200 MG IN AM AND 400 MG IN PM
     Route: 048
  4. NEULASTA [Suspect]
  5. GEMZAR [Concomitant]
     Route: 042
  6. CHEMOTHERAPEUTICS NOS [Concomitant]
     Route: 042

REACTIONS (14)
  - Skin ulcer [Not Recovered/Not Resolved]
  - Furuncle [Not Recovered/Not Resolved]
  - Skin disorder [Not Recovered/Not Resolved]
  - Skin infection [None]
  - Rash [None]
  - Fatigue [None]
  - Erythema [Not Recovered/Not Resolved]
  - Pain in extremity [None]
  - Skin disorder [Not Recovered/Not Resolved]
  - Skin ulcer haemorrhage [Not Recovered/Not Resolved]
  - Bone pain [Not Recovered/Not Resolved]
  - Haemorrhoids [Recovering/Resolving]
  - Skin disorder [Not Recovered/Not Resolved]
  - Rash [None]
